FAERS Safety Report 11724586 (Version 1)
Quarter: 2015Q4

REPORT INFORMATION
  Report Type: Spontaneous
  Country: US (occurrence: US)
  Receive Date: 20151111
  Receipt Date: 20151111
  Transmission Date: 20160304
  Serious: No
  Sender: FDA-Public Use
  Company Number: US-UCBSA-2014011795

PATIENT
  Age: 50 Year
  Sex: Male

DRUGS (2)
  1. VIMPAT [Suspect]
     Active Substance: LACOSAMIDE
     Indication: PRODUCT USED FOR UNKNOWN INDICATION
  2. DILANTIN [Concomitant]
     Active Substance: PHENYTOIN

REACTIONS (2)
  - Pruritus [Recovered/Resolved]
  - Rash [Not Recovered/Not Resolved]
